FAERS Safety Report 9666383 (Version 1)
Quarter: 2013Q4

REPORT INFORMATION
  Report Type: Spontaneous
  Country: JP (occurrence: JP)
  Receive Date: 20131104
  Receipt Date: 20131104
  Transmission Date: 20140711
  Serious: Yes (Life-Threatening)
  Sender: FDA-Public Use
  Company Number: JP-ASTRAZENECA-2013SE80161

PATIENT
  Age: 69 Year
  Sex: Male

DRUGS (1)
  1. ANAPEINE [Suspect]
     Indication: POSTOPERATIVE ANALGESIA
     Dosage: 10 MG/HR
     Route: 008

REACTIONS (1)
  - Atrioventricular block complete [Unknown]
